FAERS Safety Report 9419520 (Version 2)
Quarter: 2013Q4

REPORT INFORMATION
  Report Type: Spontaneous
  Country: IL (occurrence: IL)
  Receive Date: 20130725
  Receipt Date: 20131016
  Transmission Date: 20140711
  Serious: Yes (Hospitalization)
  Sender: FDA-Public Use
  Company Number: IL-SANOFI-AVENTIS-2013SA073219

PATIENT
  Age: 50 Year
  Sex: Female

DRUGS (4)
  1. AMBIEN [Suspect]
     Indication: INSOMNIA
     Route: 065
  2. ETOPAN [Concomitant]
  3. OMEPRADEX [Concomitant]
  4. KEPPRA [Concomitant]

REACTIONS (1)
  - Partial seizures [Recovered/Resolved]
